FAERS Safety Report 5744289-5 (Version None)
Quarter: 2008Q2

REPORT INFORMATION
  Report Type: 
  Country: None (occurrence: None)
  Receive Date: 20080516
  Receipt Date: 20080516
  Transmission Date: 20081010
  Serious: Yes (Other)
  Sender: FDA-Public Use
  Company Number: None

PATIENT
  Age: 5 Year
  Sex: Female
  Weight: 15.8759 kg

DRUGS (1)
  1. SINGULAIR [Suspect]
     Indication: SEASONAL ALLERGY
     Dosage: 4MG EVERY DAY PO/ABOUT ONE YEAR
     Route: 048

REACTIONS (5)
  - CRYING [None]
  - DRUG DOSE OMISSION [None]
  - IRRITABILITY [None]
  - SCREAMING [None]
  - STUBBORNNESS [None]
